FAERS Safety Report 11081125 (Version 1)
Quarter: 2015Q2

REPORT INFORMATION
  Report Type: Spontaneous
  Country: US (occurrence: US)
  Receive Date: 20150501
  Receipt Date: 20150501
  Transmission Date: 20150821
  Serious: Yes (Hospitalization)
  Sender: FDA-Public Use
  Company Number: US-ELI_LILLY_AND_COMPANY-US201504007503

PATIENT
  Sex: Female

DRUGS (1)
  1. HUMALOG [Suspect]
     Active Substance: INSULIN LISPRO
     Indication: TYPE 2 DIABETES MELLITUS
     Dosage: 14 U, QD, AS NEEDED
     Route: 065

REACTIONS (8)
  - Seasonal allergy [Unknown]
  - Blood pressure abnormal [Unknown]
  - Incorrect product storage [Unknown]
  - Eyelid oedema [Unknown]
  - Malaise [Unknown]
  - Injection site bruising [Unknown]
  - Abdominal discomfort [Not Recovered/Not Resolved]
  - Medication error [Unknown]
